FAERS Safety Report 12884693 (Version 1)
Quarter: 2016Q4

REPORT INFORMATION
  Report Type: Report from Study
  Country: US (occurrence: US)
  Receive Date: 20161026
  Receipt Date: 20161026
  Transmission Date: 20170207
  Serious: Yes (Other)
  Sender: FDA-Public Use
  Company Number: US-GILEAD-2016-0239918

PATIENT
  Age: 41 Year
  Sex: Female

DRUGS (3)
  1. ADCIRCA [Concomitant]
     Active Substance: TADALAFIL
  2. AMBRISENTAN [Suspect]
     Active Substance: AMBRISENTAN
     Indication: PRODUCT USED FOR UNKNOWN INDICATION
     Dosage: 5 MG, QD
     Route: 065
  3. DILTIAZEM. [Concomitant]
     Active Substance: DILTIAZEM

REACTIONS (5)
  - Systemic lupus erythematosus [Unknown]
  - Epistaxis [Unknown]
  - Dizziness [Unknown]
  - Vertigo [Unknown]
  - Dementia [Unknown]
